FAERS Safety Report 21473119 (Version 2)
Quarter: 2022Q4

REPORT INFORMATION
  Report Type: Spontaneous
  Country: MT (occurrence: MT)
  Receive Date: 20221018
  Receipt Date: 20221126
  Transmission Date: 20230113
  Serious: Yes (Death, Congenital Anomaly)
  Sender: FDA-Public Use
  Company Number: MT-BIOGEN-2022BI01162015

PATIENT

DRUGS (1)
  1. TYSABRI [Suspect]
     Active Substance: NATALIZUMAB
     Indication: Product used for unknown indication
     Route: 050

REACTIONS (2)
  - Gastroschisis [Fatal]
  - Foetal exposure during pregnancy [Recovered/Resolved]

NARRATIVE: CASE EVENT DATE: 20220703
